FAERS Safety Report 7897846-4 (Version None)
Quarter: 2011Q4

REPORT INFORMATION
  Report Type: 
  Country: None (occurrence: None)
  Receive Date: 20111103
  Receipt Date: 20111024
  Transmission Date: 20120403
  Serious: Yes (Death)
  Sender: FDA-Public Use
  Company Number: ADR-2011-11415

PATIENT
  Age: 51 Year
  Sex: Female

DRUGS (2)
  1. DILAUDID [Concomitant]
  2. BACLOFEN [Suspect]
     Indication: PAIN
     Dosage: 69.95 MCG,DAILY,INTRATH
     Route: 037

REACTIONS (1)
  - AMYOTROPHIC LATERAL SCLEROSIS [None]
